FAERS Safety Report 9476917 (Version 1)
Quarter: 2013Q3

REPORT INFORMATION
  Report Type: Spontaneous
  Country: US (occurrence: US)
  Receive Date: 20130826
  Receipt Date: 20130826
  Transmission Date: 20140515
  Serious: Yes (Other)
  Sender: FDA-Public Use
  Company Number: US-AMGEN-USASP2013059312

PATIENT
  Age: 40 Year
  Sex: Female
  Weight: 64.85 kg

DRUGS (3)
  1. ENBREL [Suspect]
     Indication: PRODUCT USED FOR UNKNOWN INDICATION
     Dosage: 50 MG, 2 TIMES/WK
     Route: 058
  2. CORDRAN [Concomitant]
     Dosage: 0.05 %, UNK
  3. OMEGA 3 6 9                        /01334101/ [Concomitant]
     Dosage: UNK

REACTIONS (1)
  - Depression [Unknown]
